FAERS Safety Report 5820199-X (Version None)
Quarter: 2008Q3

REPORT INFORMATION
  Report Type: 
  Country: None (occurrence: None)
  Receive Date: 20080724
  Receipt Date: 20080721
  Transmission Date: 20090109
  Serious: Yes (Death, Other)
  Sender: FDA-Public Use
  Company Number: PHHY2008CH14525

PATIENT
  Age: 69 Year
  Sex: Male

DRUGS (3)
  1. SANDIMMUNE [Suspect]
     Indication: APLASIA PURE RED CELL
     Dosage: 400 MG/DAY
  2. PREDNISONE TAB [Suspect]
     Dosage: 20 MG/DAY
     Dates: start: 20080603, end: 20080620
  3. PREDNISONE TAB [Suspect]
     Dosage: 20 MG
     Dates: start: 20080705

REACTIONS (11)
  - DIARRHOEA [None]
  - DYSPNOEA [None]
  - GAMMOPATHY [None]
  - GENERAL PHYSICAL HEALTH DETERIORATION [None]
  - HISTIOCYTOSIS HAEMATOPHAGIC [None]
  - HYPOXIA [None]
  - PNEUMOCYSTIS JIROVECI PNEUMONIA [None]
  - PULMONARY FIBROSIS [None]
  - RESPIRATORY FAILURE [None]
  - SPLENOMEGALY [None]
  - TACHYPNOEA [None]
